FAERS Safety Report 9159676 (Version 1)
Quarter: 2013Q1

REPORT INFORMATION
  Report Type: Spontaneous
  Country: DE (occurrence: DE)
  Receive Date: 20130313
  Receipt Date: 20130313
  Transmission Date: 20140127
  Serious: Yes (Life-Threatening, Hospitalization)
  Sender: FDA-Public Use
  Company Number: DE-ELI_LILLY_AND_COMPANY-DE201303000833

PATIENT
  Sex: Female

DRUGS (3)
  1. FORSTEO [Suspect]
     Indication: OSTEOPOROSIS
     Dosage: UNK, QD
     Route: 058
     Dates: start: 20120620, end: 20130224
  2. OSSOFORTIN [Concomitant]
     Dosage: UNK, UNKNOWN
     Route: 065
  3. LOSARTAN [Concomitant]
     Dosage: UNK, QD
     Route: 065

REACTIONS (3)
  - Sepsis [Not Recovered/Not Resolved]
  - Cholelithiasis [Not Recovered/Not Resolved]
  - Feeling abnormal [Not Recovered/Not Resolved]
